FAERS Safety Report 7554889-8 (Version None)
Quarter: 2011Q2

REPORT INFORMATION
  Report Type: 
  Country: None (occurrence: None)
  Receive Date: 20110615
  Receipt Date: 20110615
  Transmission Date: 20111010
  Serious: No
  Sender: FDA-Public Use
  Company Number: None

PATIENT
  Sex: Female

DRUGS (1)
  1. AVONEX [Suspect]
     Indication: METABOLIC DISORDER
     Dosage: 30 MCG/0.5ML IM
     Route: 030

REACTIONS (2)
  - DECREASED APPETITE [None]
  - HEADACHE [None]
